FAERS Safety Report 16848496 (Version 3)
Quarter: 2020Q4

REPORT INFORMATION
  Report Type: Other
  Country: JP (occurrence: JP)
  Receive Date: 20190925
  Receipt Date: 20201126
  Transmission Date: 20210113
  Serious: Yes (Hospitalization, Other)
  Sender: FDA-Public Use
  Company Number: JP-ROCHE-2414601

PATIENT
  Age: 60 Year
  Sex: Male
  Weight: 69 kg

DRUGS (12)
  1. FEBUXOSTAT. [Concomitant]
     Active Substance: FEBUXOSTAT
     Indication: B-CELL LYMPHOMA
     Route: 048
     Dates: start: 20181220, end: 20190611
  2. TREAKISYM [Suspect]
     Active Substance: BENDAMUSTINE HYDROCHLORIDE
     Indication: B-CELL LYMPHOMA
     Route: 041
     Dates: start: 20181222, end: 20190515
  3. ACICLOVIR [Concomitant]
     Active Substance: ACYCLOVIR
     Indication: B-CELL LYMPHOMA
     Route: 048
     Dates: start: 20181220
  4. CALONAL [Concomitant]
     Active Substance: ACETAMINOPHEN
     Route: 048
     Dates: start: 20181220, end: 20190514
  5. EMEND [Concomitant]
     Active Substance: APREPITANT
     Indication: B-CELL LYMPHOMA
     Route: 048
     Dates: start: 20181222, end: 20190516
  6. NEXIUM [Concomitant]
     Active Substance: ESOMEPRAZOLE MAGNESIUM
     Indication: B-CELL LYMPHOMA
     Route: 048
     Dates: start: 20170113
  7. BENDAMUSTINE HYDROCHLORIDE. [Concomitant]
     Active Substance: BENDAMUSTINE HYDROCHLORIDE
     Indication: B-CELL LYMPHOMA
     Route: 041
     Dates: start: 20190624, end: 2019
  8. RITUXAN [Suspect]
     Active Substance: RITUXIMAB
     Indication: B-CELL LYMPHOMA
     Route: 041
     Dates: start: 20170124, end: 20170628
  9. FLUCONAZOLE. [Concomitant]
     Active Substance: FLUCONAZOLE
     Indication: B-CELL LYMPHOMA
     Route: 048
     Dates: start: 20181220
  10. ASPIRIN. [Concomitant]
     Active Substance: ASPIRIN
     Indication: B-CELL LYMPHOMA
     Route: 048
     Dates: start: 20170119
  11. GAZYVA [Suspect]
     Active Substance: OBINUTUZUMAB
     Indication: B-CELL LYMPHOMA
     Route: 041
     Dates: start: 20181221, end: 20190514
  12. DAIPHEN [Concomitant]
     Active Substance: SULFAMETHOXAZOLE\TRIMETHOPRIM
     Indication: B-CELL LYMPHOMA
     Route: 048
     Dates: start: 20181220, end: 20190514

REACTIONS (7)
  - Cytomegalovirus test positive [Recovered/Resolved]
  - Vocal cord paralysis [Not Recovered/Not Resolved]
  - Disseminated cytomegaloviral infection [Unknown]
  - Cytomegalovirus viraemia [Recovered/Resolved]
  - Adrenal insufficiency [Not Recovered/Not Resolved]
  - Cytomegalovirus chorioretinitis [Recovered/Resolved with Sequelae]
  - Lymphocyte count decreased [Unknown]

NARRATIVE: CASE EVENT DATE: 20190813
